FAERS Safety Report 24293120 (Version 1)
Quarter: 2024Q3

REPORT INFORMATION
  Report Type: Spontaneous
  Country: US (occurrence: None)
  Receive Date: 20240906
  Receipt Date: 20240906
  Transmission Date: 20241017
  Serious: No
  Sender: DOMPE FARMACEUTICI
  Company Number: US-FARMAPROD-202311-3505

PATIENT
  Sex: Female

DRUGS (19)
  1. OXERVATE [Suspect]
     Active Substance: CENEGERMIN-BKBJ
     Indication: Neurotrophic keratopathy
     Route: 047
     Dates: start: 20231121
  2. OXERVATE [Suspect]
     Active Substance: CENEGERMIN-BKBJ
  3. EYE MULTIVITAMIN [Concomitant]
     Dosage: 2148-113
  4. EZETIMIBE [Concomitant]
     Active Substance: EZETIMIBE
  5. JARDIANCE [Concomitant]
     Active Substance: EMPAGLIFLOZIN
  6. ENTRESTO [Concomitant]
     Active Substance: SACUBITRIL\VALSARTAN
     Dosage: 24 MG-26MG
  7. ELIQUIS [Concomitant]
     Active Substance: APIXABAN
  8. LOVASTATIN [Concomitant]
     Active Substance: LOVASTATIN
  9. ASPIRIN [Concomitant]
     Active Substance: ASPIRIN
  10. VITAMINS [Concomitant]
     Active Substance: VITAMINS
  11. POTASSIUM CHLORIDE [Concomitant]
     Active Substance: POTASSIUM CHLORIDE
  12. COENZYME Q-10 [Concomitant]
  13. VITAMIN D3 [Concomitant]
     Active Substance: CHOLECALCIFEROL
  14. IVIZIA [Concomitant]
     Active Substance: POVIDONE
  15. GENTEAL TEARS [Concomitant]
     Active Substance: DEXTRAN 70\HYPROMELLOSE 2910 (4000 MPA.S)
     Dosage: 0.1%-0.3%
  16. XIIDRA [Concomitant]
     Active Substance: LIFITEGRAST
  17. METOPROLOL SUCCINATE [Concomitant]
     Active Substance: METOPROLOL SUCCINATE
  18. PROBIOTIC 10B CELL [Concomitant]
  19. PLAVIX [Concomitant]
     Active Substance: CLOPIDOGREL BISULFATE

REACTIONS (7)
  - Eye pain [Unknown]
  - Ocular hyperaemia [Unknown]
  - Accidental overdose [Unknown]
  - Device use issue [Unknown]
  - Swelling of eyelid [Not Recovered/Not Resolved]
  - Eye irritation [Unknown]
  - Eyelid pain [Unknown]
